FAERS Safety Report 9088467 (Version 1)
Quarter: 2013Q1

REPORT INFORMATION
  Report Type: Report from Study
  Country: US (occurrence: US)
  Receive Date: 20130131
  Receipt Date: 20130131
  Transmission Date: 20140127
  Serious: No
  Sender: FDA-Public Use
  Company Number: US-ABBOTT-12P-163-0990441-00

PATIENT
  Age: 50 Year
  Sex: Female

DRUGS (7)
  1. HUMIRA [Suspect]
     Indication: CROHN^S DISEASE
     Dosage: DAY 1
     Dates: start: 20120429, end: 20120429
  2. HUMIRA [Suspect]
     Dosage: DAY 15
  3. HUMIRA [Suspect]
  4. AMITRIPTYLINE [Concomitant]
     Indication: DEPRESSION
     Dosage: 25MG EVERY DAY
  5. AMITRIPTYLINE [Concomitant]
     Indication: PAIN
  6. AMITRIPTYLINE [Concomitant]
     Indication: INSOMNIA
  7. LEVOTHYROXINE [Concomitant]
     Indication: HYPOTHYROIDISM
     Dosage: 175MCG EVERY DAY

REACTIONS (2)
  - Crohn^s disease [Recovering/Resolving]
  - Inappropriate schedule of drug administration [Unknown]
